FAERS Safety Report 15384022 (Version 2)
Quarter: 2024Q1

REPORT INFORMATION
  Report Type: Spontaneous
  Country: US (occurrence: US)
  Receive Date: 20180914
  Receipt Date: 20240327
  Transmission Date: 20240409
  Serious: Yes (Hospitalization)
  Sender: FDA-Public Use
  Company Number: US-BIOGEN-2018BI00631432

PATIENT
  Sex: Female
  Weight: 15.2 kg

DRUGS (1)
  1. SPINRAZA [Suspect]
     Active Substance: NUSINERSEN
     Indication: Spinal muscular atrophy
     Route: 050
     Dates: start: 20170316

REACTIONS (5)
  - Viral infection [Unknown]
  - Acute respiratory failure [Unknown]
  - Increased bronchial secretion [Unknown]
  - Pyrexia [Unknown]
  - Lung disorder [Unknown]
